FAERS Safety Report 8926485 (Version 1)
Quarter: 2012Q4

REPORT INFORMATION
  Report Type: 
  Country: CN (occurrence: CN)
  Receive Date: 20121127
  Receipt Date: 20121127
  Transmission Date: 20130627
  Serious: Yes (Hospitalization)
  Sender: FDA-Public Use
  Company Number: PHHY2012CN107104

PATIENT
  Age: 57 Year
  Sex: Male

DRUGS (3)
  1. TEGRETOL [Suspect]
     Indication: TRIGEMINAL NEURALGIA
     Dosage: 100 mg, TID
     Route: 048
     Dates: start: 20081105, end: 20090602
  2. TEGRETOL [Suspect]
     Dosage: 200 mg, TID
  3. CARBAMAZEPINE [Concomitant]

REACTIONS (6)
  - Hepatitis viral [Unknown]
  - Drug-induced liver injury [Unknown]
  - Drug eruption [Recovered/Resolved]
  - Erythema [Recovering/Resolving]
  - Swelling [Recovering/Resolving]
  - Fatigue [Not Recovered/Not Resolved]
